FAERS Safety Report 7536766-1 (Version None)
Quarter: 2011Q2

REPORT INFORMATION
  Report Type: 
  Country: None (occurrence: None)
  Receive Date: 20110609
  Receipt Date: 20110601
  Transmission Date: 20111010
  Serious: Yes (Hospitalization)
  Sender: FDA-Public Use
  Company Number: DE-ROCHE-707694

PATIENT
  Sex: Female
  Weight: 84 kg

DRUGS (6)
  1. PREDNIHEXAL [Concomitant]
     Indication: RHEUMATOID ARTHRITIS
     Dates: start: 20050816
  2. TOCILIZUMAB [Suspect]
     Indication: RHEUMATOID ARTHRITIS
     Route: 042
     Dates: start: 20100217, end: 20100608
  3. REWODINA [Concomitant]
     Route: 048
     Dates: start: 20031229
  4. LEFLUNOMIDE [Suspect]
     Indication: RHEUMATOID ARTHRITIS
     Route: 048
     Dates: start: 20060701
  5. OMEPRAZOLE [Concomitant]
     Indication: PROPHYLAXIS
     Route: 048
     Dates: start: 20080408
  6. RAMIPRIL [Concomitant]
     Indication: HYPERTENSION
     Route: 048
     Dates: start: 20051218

REACTIONS (7)
  - BONE CYST [None]
  - SKIN NECROSIS [None]
  - ANKLE FRACTURE [None]
  - FIBULA FRACTURE [None]
  - WOUND INFECTION [None]
  - FALL [None]
  - BONE FISTULA [None]
